FAERS Safety Report 14176845 (Version 1)
Quarter: 2017Q4

REPORT INFORMATION
  Report Type: Report from Study
  Country: None (occurrence: US)
  Receive Date: 20171110
  Receipt Date: 20171110
  Transmission Date: 20180321
  Serious: Yes (Hospitalization)
  Sender: FDA-Public Use
  Company Number: US-ABBVIE-17K-163-2049673-00

PATIENT
  Sex: Female

DRUGS (2)
  1. HUMIRA [Suspect]
     Active Substance: ADALIMUMAB
     Indication: RHEUMATOID ARTHRITIS
  2. HUMIRA [Suspect]
     Active Substance: ADALIMUMAB
     Indication: PSORIATIC ARTHROPATHY
     Route: 058
     Dates: start: 201405

REACTIONS (5)
  - Condition aggravated [Unknown]
  - Spinal column stenosis [Unknown]
  - Staphylococcal infection [Unknown]
  - Fatigue [Unknown]
  - Uveitis [Unknown]

NARRATIVE: CASE EVENT DATE: 2017
